FAERS Safety Report 12306970 (Version 1)
Quarter: 2016Q2

REPORT INFORMATION
  Report Type: Spontaneous
  Country: RU (occurrence: RU)
  Receive Date: 20160426
  Receipt Date: 20160426
  Transmission Date: 20160815
  Serious: Yes (Hospitalization)
  Sender: FDA-Public Use
  Company Number: RU-ALKERMES INC.-ALK-2015-004575

PATIENT

DRUGS (1)
  1. VIVITROL [Suspect]
     Active Substance: NALTREXONE
     Indication: PRODUCT USED FOR UNKNOWN INDICATION
     Dosage: 380 MG, UNK
     Route: 030

REACTIONS (4)
  - Injection site reaction [Recovered/Resolved]
  - Injection site haematoma [Recovered/Resolved]
  - Injection site injury [Unknown]
  - Injection site pain [Recovered/Resolved]
